FAERS Safety Report 8776356 (Version 1)
Quarter: 2012Q4

REPORT INFORMATION
  Report Type: Report from Study
  Country: US (occurrence: US)
  Receive Date: 20120910
  Receipt Date: 20120910
  Transmission Date: 20130627
  Serious: Yes (Hospitalization)
  Sender: FDA-Public Use
  Company Number: US-ROCHE-1112355

PATIENT
  Age: 72 Year
  Sex: Male
  Weight: 75.28 kg

DRUGS (15)
  1. AVASTIN [Suspect]
     Indication: NON-SMALL CELL LUNG CANCER
     Dosage: last dose prior to SAE: 13/Jul/2009
     Route: 042
     Dates: start: 20090126, end: 20090330
  2. AVASTIN [Suspect]
     Route: 042
     Dates: start: 20090420, end: 20090713
  3. PACLITAXEL [Suspect]
     Indication: NON-SMALL CELL LUNG CANCER
     Route: 042
     Dates: start: 20090126, end: 20090330
  4. CARBOPLATIN [Suspect]
     Indication: NON-SMALL CELL LUNG CANCER
     Route: 042
     Dates: start: 20090126, end: 20090330
  5. CARBOPLATIN [Suspect]
     Route: 065
     Dates: start: 20090811
  6. ALIMTA [Concomitant]
     Route: 065
     Dates: start: 20090811
  7. ASPIRIN [Concomitant]
     Route: 065
     Dates: start: 20020612
  8. COMBIVENT [Concomitant]
     Route: 065
     Dates: start: 20090731
  9. FLOMAX [Concomitant]
     Route: 065
     Dates: start: 20090216
  10. FOLIC ACID [Concomitant]
     Route: 065
     Dates: start: 20090806
  11. LORAZEPAM [Concomitant]
     Route: 065
     Dates: start: 20090731
  12. MORPHINE SULFATE [Concomitant]
     Route: 065
     Dates: start: 20090622
  13. SIMVASTATIN [Concomitant]
     Route: 065
     Dates: start: 20051102
  14. DEXAMETHASONE [Concomitant]
     Route: 065
     Dates: start: 20090730
  15. DEXAMETHASONE [Concomitant]
     Dosage: dose increased
     Route: 065

REACTIONS (2)
  - Respiratory failure [Unknown]
  - Pulmonary hypertension [Unknown]
